FAERS Safety Report 7919046-1 (Version None)
Quarter: 2011Q4

REPORT INFORMATION
  Report Type: 
  Country: None (occurrence: None)
  Receive Date: 20111116
  Receipt Date: 20111107
  Transmission Date: 20120403
  Serious: Yes (Hospitalization, Disabling)
  Sender: FDA-Public Use
  Company Number: CA-ASTRAZENECA-2011SE67276

PATIENT
  Age: 66 Year
  Sex: Male
  Weight: 65.3 kg

DRUGS (2)
  1. ASAPHEN [Concomitant]
     Route: 048
  2. CRESTOR [Suspect]
     Route: 048

REACTIONS (4)
  - CEREBROVASCULAR ACCIDENT [None]
  - DIZZINESS [None]
  - HYPOKINESIA [None]
  - DIPLOPIA [None]
